FAERS Safety Report 20983015 (Version 1)
Quarter: 2022Q2

REPORT INFORMATION
  Report Type: Spontaneous
  Country: CN (occurrence: CN)
  Receive Date: 20220620
  Receipt Date: 20220620
  Transmission Date: 20220721
  Serious: Yes (Other)
  Sender: FDA-Public Use
  Company Number: CN-BAXTER-2022BAX012592

PATIENT
  Age: 69 Year
  Sex: Male
  Weight: 50 kg

DRUGS (2)
  1. SODIUM CHLORIDE [Suspect]
     Active Substance: SODIUM CHLORIDE
     Indication: Infusion
     Dosage: 50 ML, QD
     Route: 041
     Dates: start: 20220530, end: 20220530
  2. CEFOTAXIME SODIUM [Suspect]
     Active Substance: CEFOTAXIME SODIUM
     Indication: Intraoperative care
     Dosage: 2 G, BID
     Route: 041
     Dates: start: 20220530, end: 20220530

REACTIONS (1)
  - Erythema [Recovering/Resolving]

NARRATIVE: CASE EVENT DATE: 20220530
